FAERS Safety Report 7630538 (Version 4)
Quarter: 2013Q2

REPORT INFORMATION
  Report Type: Spontaneous
  Country: US (occurrence: US)
  Receive Date: 20101015
  Receipt Date: 20130513
  Transmission Date: 20140414
  Serious: Yes (Other)
  Sender: FDA-Public Use
  Company Number: US-RB-016511-10

PATIENT
  Age: 28 Year
  Sex: Female

DRUGS (2)
  1. SUBOXONE TABLETS [Suspect]
     Indication: DRUG DEPENDENCE
     Route: 060
     Dates: start: 201001, end: 201006
  2. SUBUTEX TABLETS [Suspect]
     Indication: DRUG DEPENDENCE
     Dosage: DOSES VARY FROM 8 - 12 MG
     Route: 060
     Dates: start: 201006

REACTIONS (5)
  - Exposure during pregnancy [Recovered/Resolved]
  - Vaginal haemorrhage [Not Recovered/Not Resolved]
  - Premature rupture of membranes [Recovered/Resolved]
  - Abortion spontaneous [Recovered/Resolved]
  - Pain [Not Recovered/Not Resolved]
